FAERS Safety Report 10088420 (Version 1)
Quarter: 2014Q2

REPORT INFORMATION
  Report Type: Spontaneous
  Country: PR (occurrence: PR)
  Receive Date: 20140421
  Receipt Date: 20140421
  Transmission Date: 20141212
  Serious: No
  Sender: FDA-Public Use
  Company Number: PR-BIOGENIDEC-2014BI031452

PATIENT
  Sex: Female

DRUGS (3)
  1. TECFIDERA [Suspect]
     Indication: MULTIPLE SCLEROSIS
     Dates: end: 20140328
  2. PAXIL [Concomitant]
  3. CENTRUM [Concomitant]

REACTIONS (5)
  - Balance disorder [Unknown]
  - Decreased appetite [Unknown]
  - Gastric disorder [Unknown]
  - Underdose [Recovered/Resolved]
  - Diarrhoea [Unknown]
